FAERS Safety Report 11235874 (Version 1)
Quarter: 2015Q3

REPORT INFORMATION
  Report Type: Report from Study
  Country: US (occurrence: US)
  Receive Date: 20150702
  Receipt Date: 20150702
  Transmission Date: 20151125
  Serious: Yes (Other)
  Sender: FDA-Public Use
  Company Number: US-GILEAD-2015-0160948

PATIENT
  Age: 82 Year
  Sex: Male

DRUGS (1)
  1. RANOLAZINE [Suspect]
     Active Substance: RANOLAZINE
     Indication: CHEST PAIN
     Dosage: 1000 MG, UNK
     Route: 048

REACTIONS (2)
  - Renal cancer [Unknown]
  - Lung neoplasm malignant [Unknown]
